FAERS Safety Report 13365111 (Version 1)
Quarter: 2017Q1

REPORT INFORMATION
  Report Type: Spontaneous
  Country: US (occurrence: US)
  Receive Date: 20170323
  Receipt Date: 20170323
  Transmission Date: 20170429
  Serious: Yes (Other)
  Sender: FDA-Public Use
  Company Number: US-MYLANLABS-2017M1017899

PATIENT

DRUGS (2)
  1. ALENDRONATE [Suspect]
     Active Substance: ALENDRONATE SODIUM
     Indication: PRODUCT USED FOR UNKNOWN INDICATION
     Dosage: SHE HAD BEEN RECEIVING ALENDRONIC ACID FOR MORE THAN 10 YEARS
     Route: 048
  2. RECLAST [Suspect]
     Active Substance: ZOLEDRONIC ACID
     Indication: PRODUCT USED FOR UNKNOWN INDICATION
     Dosage: SHE RECEIVED A SINGLE DOSE OF ZOLEDRONIC ACID.
     Route: 042

REACTIONS (3)
  - Osteonecrosis of jaw [Unknown]
  - Jaw fracture [Unknown]
  - Infection [Unknown]
